FAERS Safety Report 19467309 (Version 1)
Quarter: 2021Q2

REPORT INFORMATION
  Report Type: Spontaneous
  Country: AU (occurrence: AU)
  Receive Date: 20210628
  Receipt Date: 20210628
  Transmission Date: 20210717
  Serious: Yes (Other)
  Sender: FDA-Public Use
  Company Number: AU-PFIZER INC-2021763073

PATIENT
  Age: 71 Year
  Sex: Male

DRUGS (4)
  1. TRIAMTERENE. [Suspect]
     Active Substance: TRIAMTERENE
     Indication: HYPERTENSION
     Dosage: 50 MG
  2. PRAZOSIN HCL [Suspect]
     Active Substance: PRAZOSIN HYDROCHLORIDE
     Indication: HYPERTENSION
     Dosage: 0.5 MG, 1X/DAY
     Route: 048
  3. ATENOLOL. [Suspect]
     Active Substance: ATENOLOL
     Indication: HYPERTENSION
     Dosage: 50 MG, 1X/DAY
  4. HYDROCHLOROTHIAZIDE. [Suspect]
     Active Substance: HYDROCHLOROTHIAZIDE
     Indication: HYPERTENSION
     Dosage: 25 MG

REACTIONS (2)
  - Brain stem ischaemia [Recovered/Resolved]
  - Orthostatic hypotension [Recovered/Resolved]
